FAERS Safety Report 19046172 (Version 2)
Quarter: 2021Q2

REPORT INFORMATION
  Report Type: Report from Study
  Country: US (occurrence: US)
  Receive Date: 20210323
  Receipt Date: 20210422
  Transmission Date: 20210717
  Serious: Yes (Hospitalization, Other)
  Sender: FDA-Public Use
  Company Number: US-BRISTOL-MYERS SQUIBB COMPANY-BMS-2021-026690

PATIENT
  Age: 43 Year
  Sex: Female
  Weight: 86.17 kg

DRUGS (1)
  1. ABATACEPT [Suspect]
     Active Substance: ABATACEPT
     Indication: RHEUMATOID ARTHRITIS
     Dosage: 250 MILLIGRAM, Q4WK
     Route: 042
     Dates: start: 202006

REACTIONS (9)
  - Vomiting [Unknown]
  - Discomfort [Unknown]
  - Illness [Unknown]
  - Brain neoplasm [Unknown]
  - Prescribed underdose [Unknown]
  - Seizure [Unknown]
  - Rash erythematous [Recovered/Resolved]
  - Thinking abnormal [Unknown]
  - Diarrhoea [Unknown]

NARRATIVE: CASE EVENT DATE: 202103
